FAERS Safety Report 6822427-0 (Version None)
Quarter: 2010Q3

REPORT INFORMATION
  Report Type: 
  Country: None (occurrence: None)
  Receive Date: 20100708
  Receipt Date: 20100628
  Transmission Date: 20110219
  Serious: Yes (Other)
  Sender: FDA-Public Use
  Company Number: US-JNJFOC-20100401610

PATIENT
  Sex: Female

DRUGS (7)
  1. NUCYNTA [Suspect]
     Indication: POST HERPETIC NEURALGIA
     Route: 048
  2. GABAPENTIN [Concomitant]
  3. TRIAMTERENE [Concomitant]
  4. PREVACID [Concomitant]
  5. PRAVASTATIN [Concomitant]
  6. TRAVATAN [Concomitant]
  7. TYLENOL PM EXTRA STRENGTH [Concomitant]

REACTIONS (2)
  - INTRAOCULAR PRESSURE INCREASED [None]
  - VISUAL FIELD DEFECT [None]
